FAERS Safety Report 8014839-7 (Version None)
Quarter: 2011Q4

REPORT INFORMATION
  Report Type: 
  Country: None (occurrence: None)
  Receive Date: 20111229
  Receipt Date: 20111226
  Transmission Date: 20120403
  Serious: Yes (Hospitalization)
  Sender: FDA-Public Use
  Company Number: PT-PFIZER INC-2011289325

PATIENT
  Age: 64 Year
  Sex: Female
  Weight: 86 kg

DRUGS (6)
  1. PEGVISOMANT [Suspect]
     Indication: ACROMEGALY
     Dosage: 10 MG, 1X/DAY
     Route: 058
     Dates: start: 20050102, end: 20101214
  2. LANREOTIDE ACETATE [Concomitant]
     Indication: INSULIN-LIKE GROWTH FACTOR INCREASED
     Dosage: UNK
     Route: 030
     Dates: start: 20030307
  3. LEVOTHYROXINE SODIUM [Concomitant]
     Indication: BLOOD THYROID STIMULATING HORMONE DECREASED
     Dosage: UNK
     Route: 048
     Dates: start: 20030122
  4. PEGVISOMANT [Suspect]
     Dosage: 15 MG, 1X/DAY
     Route: 058
     Dates: start: 20101215, end: 20111119
  5. VALSARTAN [Concomitant]
     Indication: HYPERTENSION
     Dosage: UNK
     Route: 048
     Dates: start: 20100107
  6. ROSUVASTATIN [Concomitant]
     Indication: LIPID METABOLISM DISORDER
     Dosage: UNK
     Route: 048
     Dates: start: 20071001

REACTIONS (2)
  - PANCYTOPENIA [None]
  - URINARY TRACT INFECTION [None]
